FAERS Safety Report 10351396 (Version 3)
Quarter: 2014Q4

REPORT INFORMATION
  Report Type: Spontaneous
  Country: FR (occurrence: FR)
  Receive Date: 20140730
  Receipt Date: 20141010
  Transmission Date: 20150528
  Serious: Yes (Hospitalization, Other)
  Sender: FDA-Public Use
  Company Number: FR-BRISTOL-MYERS SQUIBB COMPANY-21235254

PATIENT
  Age: 78 Year
  Sex: Female

DRUGS (5)
  1. NOCTAMIDE [Concomitant]
     Active Substance: LORMETAZEPAM
  2. ELIQUIS [Suspect]
     Active Substance: APIXABAN
     Dates: start: 20140418, end: 20140520
  3. ANAFRANIL [Concomitant]
     Active Substance: CLOMIPRAMINE HYDROCHLORIDE
  4. TEMESTA [Concomitant]
     Active Substance: LORAZEPAM
  5. CORDARONE [Concomitant]
     Active Substance: AMIODARONE HYDROCHLORIDE

REACTIONS (4)
  - Gastrointestinal haemorrhage [Unknown]
  - Melaena [Unknown]
  - Anaemia [Unknown]
  - Angiodysplasia [Unknown]

NARRATIVE: CASE EVENT DATE: 201406
